FAERS Safety Report 4282345-1 (Version None)
Quarter: 2004Q1

REPORT INFORMATION
  Report Type: 
  Country: None (occurrence: None)
  Receive Date: 20040130
  Receipt Date: 20040108
  Transmission Date: 20041129
  Serious: Yes (Hospitalization)
  Sender: FDA-Public Use
  Company Number: WAES 0401USA00625

PATIENT
  Age: 63 Year
  Sex: Female
  Weight: 70 kg

DRUGS (3)
  1. FOSAMAX [Suspect]
     Indication: OSTEOPOROSIS
     Route: 048
     Dates: start: 20031021, end: 20031220
  2. ALFACALCIDOL [Concomitant]
     Indication: OSTEOPOROSIS
     Dates: start: 20031021
  3. CALCIUM ASPARTATE [Concomitant]
     Indication: OSTEOPOROSIS
     Dates: start: 20031021

REACTIONS (3)
  - HAEMATEMESIS [None]
  - OESOPHAGEAL ULCER [None]
  - REFLUX OESOPHAGITIS [None]
